FAERS Safety Report 10268530 (Version 1)
Quarter: 2014Q2

REPORT INFORMATION
  Report Type: Spontaneous
  Country: US (occurrence: None)
  Receive Date: 20140627
  Receipt Date: 20140627
  Transmission Date: 20141212
  Serious: No
  Sender: FDA-Public Use
  Company Number: None

PATIENT
  Age: 27 Year
  Sex: Female
  Weight: 61.24 kg

DRUGS (1)
  1. PROACTIV [Suspect]
     Dosage: APPLIED TO A SURFACE, USUALLY THE SKIN
     Dates: start: 20130408, end: 20130416

REACTIONS (3)
  - Eye swelling [None]
  - Lip swelling [None]
  - Drug hypersensitivity [None]
